FAERS Safety Report 4716485-7 (Version None)
Quarter: 2005Q3

REPORT INFORMATION
  Report Type: 
  Country: None (occurrence: None)
  Receive Date: 20050714
  Receipt Date: 20050701
  Transmission Date: 20060218
  Serious: Yes (Other)
  Sender: FDA-Public Use
  Company Number: 2005096624

PATIENT
  Age: 60 Year
  Sex: Male
  Weight: 75 kg

DRUGS (1)
  1. VIAGRA [Suspect]
     Indication: ERECTILE DYSFUNCTION
     Dosage: 100 MG (100 MG, AS NECESSARY), ORAL
     Route: 048
     Dates: start: 20010101, end: 20050617

REACTIONS (8)
  - CARDIAC FAILURE [None]
  - DISCOMFORT [None]
  - HEADACHE [None]
  - MYOCARDIAL INFARCTION [None]
  - OCULAR HYPERAEMIA [None]
  - OPTIC ISCHAEMIC NEUROPATHY [None]
  - SELF-MEDICATION [None]
  - VISUAL ACUITY REDUCED [None]
